FAERS Safety Report 10043415 (Version 1)
Quarter: 2014Q1

REPORT INFORMATION
  Report Type: Spontaneous
  Country: US (occurrence: US)
  Receive Date: 20140328
  Receipt Date: 20140328
  Transmission Date: 20141002
  Serious: No
  Sender: FDA-Public Use
  Company Number: US-PFIZER INC-2014086385

PATIENT
  Age: 77 Year
  Sex: Male
  Weight: 97.51 kg

DRUGS (2)
  1. LYRICA [Suspect]
     Indication: NEUROPATHY PERIPHERAL
     Dosage: 75 MG, 2X/DAY
  2. LEVOFLOXACIN [Interacting]
     Indication: KIDNEY INFECTION
     Dosage: 500 MG, DAILY
     Dates: start: 201403, end: 201403

REACTIONS (4)
  - Drug interaction [Unknown]
  - Musculoskeletal stiffness [Not Recovered/Not Resolved]
  - Tendonitis [Not Recovered/Not Resolved]
  - Myalgia [Not Recovered/Not Resolved]
